FAERS Safety Report 17046449 (Version 8)
Quarter: 2020Q4

REPORT INFORMATION
  Report Type: Other
  Country: US (occurrence: US)
  Receive Date: 20191119
  Receipt Date: 20201224
  Transmission Date: 20210113
  Serious: Yes (Other)
  Sender: FDA-Public Use
  Company Number: US-ROCHE-2395518

PATIENT
  Age: 51 Year
  Sex: Female
  Weight: 77.18 kg

DRUGS (4)
  1. OCREVUS [Suspect]
     Active Substance: OCRELIZUMAB
     Route: 065
     Dates: start: 2016
  2. LISINOPRIL. [Concomitant]
     Active Substance: LISINOPRIL
     Indication: HYPERTENSION
     Route: 048
  3. OCREVUS [Suspect]
     Active Substance: OCRELIZUMAB
     Indication: RELAPSING MULTIPLE SCLEROSIS
     Dosage: SUBSEQUENT DOSE OF 600 MG EVERY 6 MONTHS?FURTHER DOSES ON 18/DEC/2018, 20/DEC/2018, 23/DEC/2018, 09/
     Route: 042
     Dates: start: 20180328
  4. AMLODIPINE [Concomitant]
     Active Substance: AMLODIPINE BESYLATE
     Indication: HYPERTENSION
     Route: 048
     Dates: start: 201908

REACTIONS (19)
  - Speech disorder [Unknown]
  - Pollakiuria [Unknown]
  - Off label use [Unknown]
  - Peripheral swelling [Unknown]
  - Cough [Not Recovered/Not Resolved]
  - Intentional product use issue [Unknown]
  - Gait disturbance [Not Recovered/Not Resolved]
  - Dysuria [Not Recovered/Not Resolved]
  - Central nervous system lesion [Unknown]
  - Asthenia [Not Recovered/Not Resolved]
  - Fungal infection [Unknown]
  - Dysphagia [Not Recovered/Not Resolved]
  - Retching [Not Recovered/Not Resolved]
  - Memory impairment [Unknown]
  - Multiple sclerosis [Not Recovered/Not Resolved]
  - Pain [Not Recovered/Not Resolved]
  - Pain in extremity [Not Recovered/Not Resolved]
  - Drug ineffective [Unknown]
  - Restless legs syndrome [Recovered/Resolved]

NARRATIVE: CASE EVENT DATE: 201908
